FAERS Safety Report 4905875-5 (Version None)
Quarter: 2006Q1

REPORT INFORMATION
  Report Type: 
  Country: None (occurrence: None)
  Receive Date: 20060203
  Receipt Date: 20060118
  Transmission Date: 20060701
  Serious: Yes (Hospitalization)
  Sender: FDA-Public Use
  Company Number: 2005BI022379

PATIENT
  Age: 89 Year
  Sex: Male

DRUGS (12)
  1. ZEVALIN [Suspect]
     Indication: NON-HODGKIN'S LYMPHOMA
     Dosage: 1X; IV
     Route: 042
     Dates: start: 20051213, end: 20051213
  2. ZEVALIN [Suspect]
     Indication: NON-HODGKIN'S LYMPHOMA
     Dosage: 23.5 MCI; X1; IV
     Route: 042
     Dates: start: 20051221, end: 20051221
  3. RITUXIMAB [Concomitant]
  4. ATROVENT [Concomitant]
  5. ALBUTEROL [Concomitant]
  6. PREDNISONE [Concomitant]
  7. ZETIA [Concomitant]
  8. SYNTHROID [Concomitant]
  9. PREVACID [Concomitant]
  10. POTASSIUM CHLORIDE [Concomitant]
  11. LASIX [Concomitant]
  12. RITUXIMAB [Concomitant]

REACTIONS (17)
  - BLOOD CHLORIDE DECREASED [None]
  - BLOOD CREATININE INCREASED [None]
  - BLOOD GLUCOSE INCREASED [None]
  - BLOOD PRESSURE DIASTOLIC DECREASED [None]
  - BLOOD SODIUM DECREASED [None]
  - BLOOD UREA INCREASED [None]
  - BODY TEMPERATURE INCREASED [None]
  - BRADYCARDIA [None]
  - CARDIAC DISORDER [None]
  - DIZZINESS [None]
  - FALL [None]
  - HAEMATOCRIT DECREASED [None]
  - HAEMOGLOBIN DECREASED [None]
  - HEART RATE DECREASED [None]
  - HYPOALBUMINAEMIA [None]
  - HYPOCALCAEMIA [None]
  - PROTEIN TOTAL INCREASED [None]
